APPROVED DRUG PRODUCT: DAYTRANA
Active Ingredient: METHYLPHENIDATE
Strength: 15MG/9HR (1.6MG/HR)
Dosage Form/Route: FILM, EXTENDED RELEASE;TRANSDERMAL
Application: N021514 | Product #002 | TE Code: AB
Applicant: NOVEN PHARMACEUTICALS INC
Approved: Apr 6, 2006 | RLD: Yes | RS: No | Type: RX